FAERS Safety Report 14323781 (Version 1)
Quarter: 2017Q4

REPORT INFORMATION
  Report Type: Spontaneous
  Country: CA (occurrence: CA)
  Receive Date: 20171226
  Receipt Date: 20171226
  Transmission Date: 20180321
  Serious: Yes (Life-Threatening, Hospitalization)
  Sender: FDA-Public Use
  Company Number: CA-JNJFOC-20171218357

PATIENT
  Age: 16 Month
  Sex: Female

DRUGS (3)
  1. IBUPROFEN. [Suspect]
     Active Substance: IBUPROFEN
     Indication: PARAINFLUENZAE VIRUS INFECTION
     Dosage: EVERY 6 H
     Route: 065
  2. IBUPROFEN. [Suspect]
     Active Substance: IBUPROFEN
     Route: 065
  3. DEXAMETHASONE. [Suspect]
     Active Substance: DEXAMETHASONE
     Indication: PARAINFLUENZAE VIRUS INFECTION
     Dosage: EVERY 6 H
     Route: 065

REACTIONS (3)
  - Product use in unapproved indication [Unknown]
  - Duodenal ulcer perforation [Unknown]
  - Off label use [Unknown]
